FAERS Safety Report 6383017-X (Version None)
Quarter: 2009Q3

REPORT INFORMATION
  Report Type: 
  Country: None (occurrence: None)
  Receive Date: 20090930
  Receipt Date: 20090526
  Transmission Date: 20100115
  Serious: Yes (Other)
  Sender: FDA-Public Use
  Company Number: BR-PFIZER INC-2009218910

PATIENT
  Age: 38 Year

DRUGS (1)
  1. DEPO-PROVERA [Suspect]
     Dosage: 150 MG
     Route: 030
     Dates: start: 20090330, end: 20090330

REACTIONS (5)
  - ERYTHEMA [None]
  - MUSCULOSKELETAL PAIN [None]
  - PYREXIA [None]
  - SUBCUTANEOUS ABSCESS [None]
  - SWELLING [None]
